FAERS Safety Report 7105303-8 (Version None)
Quarter: 2010Q4

REPORT INFORMATION
  Report Type: 
  Country: None (occurrence: None)
  Receive Date: 20101116
  Receipt Date: 20101103
  Transmission Date: 20110411
  Serious: Yes (Other)
  Sender: FDA-Public Use
  Company Number: US-ELI_LILLY_AND_COMPANY-US200911005833

PATIENT
  Sex: Female
  Weight: 44.444 kg

DRUGS (13)
  1. FORTEO [Suspect]
     Indication: OSTEOPOROSIS
     Dosage: 20 UG, DAILY (1/D)
     Dates: start: 20090901
  2. FORTEO [Suspect]
     Dosage: 20 UG, DAILY (1/D)
  3. VALIUM [Concomitant]
  4. PROVENTIL                               /USA/ [Concomitant]
     Route: 055
  5. FIBERCON [Concomitant]
  6. COUMADIN [Concomitant]
  7. ZYRTEC [Concomitant]
  8. EPIPEN [Concomitant]
  9. NITRO-SPRAY [Concomitant]
  10. FERROUS SULFATE [Concomitant]
     Indication: ANAEMIA
  11. VITAMIN B NOS [Concomitant]
  12. FOLIC ACID [Concomitant]
  13. AREDIA [Concomitant]

REACTIONS (50)
  - ANAEMIA [None]
  - ARTERIAL SPASM [None]
  - BACK PAIN [None]
  - BALANCE DISORDER [None]
  - BODY HEIGHT DECREASED [None]
  - BONE DISORDER [None]
  - CEREBRAL PALSY [None]
  - CHEST PAIN [None]
  - COMPRESSION FRACTURE [None]
  - CONCUSSION [None]
  - CONTUSION [None]
  - DEEP VEIN THROMBOSIS [None]
  - DIZZINESS [None]
  - DRUG INEFFECTIVE [None]
  - DRUG LEVEL FLUCTUATING [None]
  - DYSPNOEA [None]
  - FALL [None]
  - FATIGUE [None]
  - GRAND MAL CONVULSION [None]
  - HEADACHE [None]
  - HEART RATE IRREGULAR [None]
  - INJECTION SITE HAEMATOMA [None]
  - INJECTION SITE URTICARIA [None]
  - LETHARGY [None]
  - LIGAMENT RUPTURE [None]
  - LOSS OF CONSCIOUSNESS [None]
  - LOSS OF CONTROL OF LEGS [None]
  - MEMORY IMPAIRMENT [None]
  - MIGRAINE [None]
  - MUSCLE CONTRACTIONS INVOLUNTARY [None]
  - MUSCLE RUPTURE [None]
  - MUSCULAR WEAKNESS [None]
  - NAUSEA [None]
  - NECK PAIN [None]
  - PAIN [None]
  - PAIN IN EXTREMITY [None]
  - PAIN IN JAW [None]
  - PETIT MAL EPILEPSY [None]
  - RASH PRURITIC [None]
  - RIB FRACTURE [None]
  - SCOLIOSIS [None]
  - SOFT TISSUE INJURY [None]
  - SOMNOLENCE [None]
  - SWELLING [None]
  - TEMPOROMANDIBULAR JOINT SYNDROME [None]
  - TENDON RUPTURE [None]
  - URTICARIA [None]
  - VISION BLURRED [None]
  - VOMITING [None]
  - WEIGHT DECREASED [None]
